FAERS Safety Report 9739206 (Version 4)
Quarter: 2014Q2

REPORT INFORMATION
  Report Type: Report from Study
  Country: FR (occurrence: FR)
  Receive Date: 20131209
  Receipt Date: 20140428
  Transmission Date: 20141212
  Serious: Yes (Other)
  Sender: FDA-Public Use
  Company Number: FR-UCBSA-104971

PATIENT
  Sex: Female
  Weight: 47 kg

DRUGS (6)
  1. CIMZIA [Suspect]
     Indication: RHEUMATOID ARTHRITIS
     Route: 058
     Dates: start: 201308, end: 20131114
  2. SPIRIVA [Concomitant]
     Indication: ASTHMA
     Dates: start: 201112
  3. SYMBICORT [Concomitant]
     Indication: ASTHMA
     Dates: start: 201112
  4. SINGULAIR [Concomitant]
     Indication: ASTHMA
     Dates: start: 201112
  5. LANTUS [Concomitant]
     Indication: DIABETES MELLITUS
     Dosage: DAILY DOSE: 8 UI ONCE DAILY
     Dates: start: 1979
  6. ROACTEMRA [Concomitant]
     Indication: INTERSTITIAL LUNG DISEASE

REACTIONS (2)
  - Pleurisy [Recovered/Resolved]
  - Noninfective bronchitis [Recovered/Resolved]
